FAERS Safety Report 25820949 (Version 1)
Quarter: 2025Q3

REPORT INFORMATION
  Report Type: Spontaneous
  Country: KR (occurrence: KR)
  Receive Date: 20250919
  Receipt Date: 20250919
  Transmission Date: 20251021
  Serious: Yes (Other)
  Sender: Kenvue
  Company Number: KR-KENVUE-20250905288

PATIENT

DRUGS (1)
  1. TYLENOL 8HR [Suspect]
     Active Substance: ACETAMINOPHEN
     Indication: Drug hypersensitivity
     Dosage: 650 MILLIGRAM, ONCE A DAY (1 DAY)
     Route: 065
     Dates: start: 20230316, end: 20230316

REACTIONS (5)
  - Chest discomfort [Recovered/Resolved]
  - Dysphonia [Recovered/Resolved]
  - Paraesthesia [Recovered/Resolved]
  - Angioedema [Recovered/Resolved]
  - Dyspnoea [Recovered/Resolved]

NARRATIVE: CASE EVENT DATE: 20230316
